FAERS Safety Report 22274492 (Version 2)
Quarter: 2023Q2

REPORT INFORMATION
  Report Type: Spontaneous
  Country: GB (occurrence: GB)
  Receive Date: 20230502
  Receipt Date: 20230518
  Transmission Date: 20230722
  Serious: Yes (Hospitalization, Other)
  Sender: FDA-Public Use
  Company Number: None

PATIENT
  Age: 74 Year
  Sex: Female

DRUGS (21)
  1. ALENDRONATE SODIUM [Suspect]
     Active Substance: ALENDRONATE SODIUM
     Dosage: SUNDAYS
  2. EPINEPHRINE BITARTRATE [Suspect]
     Active Substance: EPINEPHRINE BITARTRATE
     Dosage: 150 MICROGRAMS/0.15ML (ADRENALINE 1 IN 1,000);AUTO-INJECTORS MDU
  3. CALCIUM CARBONATE\CHOLECALCIFEROL [Suspect]
     Active Substance: CALCIUM CARBONATE\CHOLECALCIFEROL
     Dosage: COLECALCIFEROL 400UNIT / CALCIUM CARBONATE 1.5G(M,T)
  4. CALCIUM CARBONATE\CHOLECALCIFEROL [Suspect]
     Active Substance: CALCIUM CARBONATE\CHOLECALCIFEROL
     Dosage: COLECALCIFEROL 400UNIT / CALCIUM CARBONATE 1.5G(M,T)
  5. ROSUVASTATIN [Suspect]
     Active Substance: ROSUVASTATIN
     Dosage: ON
  6. MEBEVERINE [Suspect]
     Active Substance: MEBEVERINE
     Dosage: (M, T)
  7. MEBEVERINE [Suspect]
     Active Substance: MEBEVERINE
     Dosage: (M,T)
  8. OMEPRAZOLE [Suspect]
     Active Substance: OMEPRAZOLE
     Dosage: (M, T)
  9. OMEPRAZOLE [Suspect]
     Active Substance: OMEPRAZOLE
     Dosage: (M,T)
  10. OXYCODONE [Suspect]
     Active Substance: OXYCODONE
     Dosage: (M,N)
  11. OXYCODONE [Suspect]
     Active Substance: OXYCODONE
     Dosage: (M,N)
  12. GABAPENTIN [Suspect]
     Active Substance: GABAPENTIN
     Dosage: (M, L, T)
  13. GABAPENTIN [Suspect]
     Active Substance: GABAPENTIN
     Dosage: (M,I,T)
  14. METFORMIN [Suspect]
     Active Substance: METFORMIN HYDROCHLORIDE
     Dosage: (M, T)
  15. METFORMIN [Suspect]
     Active Substance: METFORMIN HYDROCHLORIDE
     Dosage: (M,T)
  16. ASPIRIN [Suspect]
     Active Substance: ASPIRIN
     Dosage: OM
  17. ACETAMINOPHEN [Suspect]
     Active Substance: ACETAMINOPHEN
     Dosage: 2 GRAM, QID
  18. ACETAMINOPHEN [Suspect]
     Active Substance: ACETAMINOPHEN
     Dosage: 8 GRAM, QD
  19. LEVOTHYROXINE SODIUM [Suspect]
     Active Substance: LEVOTHYROXINE SODIUM
     Dosage: OM
  20. FUROSEMIDE [Suspect]
     Active Substance: FUROSEMIDE
     Dosage: OM
  21. ESCITALOPRAM [Suspect]
     Active Substance: ESCITALOPRAM OXALATE
     Dosage: 10 MILLIGRAM, QD

REACTIONS (3)
  - Accidental overdose [Recovered/Resolved]
  - Confusional state [Unknown]
  - Somnolence [Unknown]
